FAERS Safety Report 25691136 (Version 1)
Quarter: 2025Q3

REPORT INFORMATION
  Report Type: Spontaneous
  Country: US (occurrence: None)
  Receive Date: 20250818
  Receipt Date: 20250818
  Transmission Date: 20251021
  Serious: Yes (Death)
  Sender: FDA-CTU
  Company Number: None

PATIENT
  Sex: Female

DRUGS (6)
  1. HEPARIN [Suspect]
     Active Substance: HEPARIN SODIUM
  2. ASPIRIN [Suspect]
     Active Substance: ASPIRIN
  3. HEPARIN [Concomitant]
     Active Substance: HEPARIN SODIUM
  4. ASPIRIN [Concomitant]
     Active Substance: ASPIRIN
  5. TICAGRELOR [Concomitant]
     Active Substance: TICAGRELOR
  6. EPTIFIBATIDE [Concomitant]
     Active Substance: EPTIFIBATIDE

REACTIONS (7)
  - Influenza A virus test positive [None]
  - Acute myocardial infarction [None]
  - Haemoglobin decreased [None]
  - Gastrointestinal haemorrhage [None]
  - Haemoptysis [None]
  - Haematemesis [None]
  - Cardio-respiratory arrest [None]

NARRATIVE: CASE EVENT DATE: 20240401
